FAERS Safety Report 7070258-1 (Version None)
Quarter: 2010Q4

REPORT INFORMATION
  Report Type: 
  Country: None (occurrence: None)
  Receive Date: 20101028
  Receipt Date: 20101001
  Transmission Date: 20110411
  Serious: No
  Sender: FDA-Public Use
  Company Number: US-WYE-H17968210

PATIENT
  Sex: Male
  Weight: 113.5 kg

DRUGS (2)
  1. PROTONIX [Suspect]
     Indication: ABDOMINAL PAIN
     Dates: start: 20101001
  2. PROTONIX [Suspect]
     Indication: ABDOMINAL DISCOMFORT

REACTIONS (3)
  - ABDOMINAL DISCOMFORT [None]
  - ABDOMINAL PAIN [None]
  - CONDITION AGGRAVATED [None]
